FAERS Safety Report 25655156 (Version 1)
Quarter: 2025Q3

REPORT INFORMATION
  Report Type: Spontaneous
  Country: CN (occurrence: CN)
  Receive Date: 20250807
  Receipt Date: 20250807
  Transmission Date: 20251020
  Serious: Yes (Hospitalization)
  Sender: PFIZER
  Company Number: CN-PFIZER INC-PV202500094452

PATIENT
  Age: 52 Year
  Sex: Female

DRUGS (1)
  1. XYNTHA [Suspect]
     Active Substance: MOROCTOCOG ALFA
     Indication: Factor VIII deficiency
     Route: 042

REACTIONS (12)
  - Joint swelling [Unknown]
  - Tendon disorder [Recovering/Resolving]
  - Ultrasound scan abnormal [Recovering/Resolving]
  - Meniscus injury [Recovering/Resolving]
  - Ligament injury [Recovering/Resolving]
  - Joint effusion [Recovering/Resolving]
  - Effusion [Recovering/Resolving]
  - Bone hypertrophy [Recovering/Resolving]
  - Joint range of motion decreased [Unknown]
  - Arthralgia [Unknown]
  - Peripheral swelling [Unknown]
  - Gait disturbance [Unknown]
